FAERS Safety Report 7297873-4 (Version None)
Quarter: 2011Q1

REPORT INFORMATION
  Report Type: 
  Country: None (occurrence: None)
  Receive Date: 20110217
  Receipt Date: 20110209
  Transmission Date: 20110831
  Serious: Yes (Other)
  Sender: FDA-Public Use
  Company Number: JP-JNJFOC-20110203178

PATIENT
  Sex: Female

DRUGS (2)
  1. DOXIL [Suspect]
     Indication: OVARIAN CANCER RECURRENT
     Route: 042
  2. CARBOPLATIN [Suspect]
     Indication: OVARIAN CANCER RECURRENT
     Route: 065

REACTIONS (2)
  - VIITH NERVE PARALYSIS [None]
  - HERPES VIRUS INFECTION [None]
